FAERS Safety Report 23549380 (Version 1)
Quarter: 2024Q1

REPORT INFORMATION
  Report Type: Spontaneous
  Country: US (occurrence: US)
  Receive Date: 20240221
  Receipt Date: 20240221
  Transmission Date: 20240410
  Serious: No
  Sender: FDA-Public Use
  Company Number: US-PFIZER INC-202400044606

PATIENT
  Sex: Female

DRUGS (1)
  1. LIOTHYRONINE SODIUM [Suspect]
     Active Substance: LIOTHYRONINE SODIUM
     Indication: Hypothyroidism
     Dosage: GOES OVER 20MCG

REACTIONS (4)
  - Pain [Unknown]
  - Hyperacusis [Recovered/Resolved]
  - Photophobia [Recovered/Resolved]
  - Therapeutic response unexpected [Unknown]
